FAERS Safety Report 25685846 (Version 1)
Quarter: 2025Q3

REPORT INFORMATION
  Report Type: Spontaneous
  Country: CN (occurrence: CN)
  Receive Date: 20250815
  Receipt Date: 20250815
  Transmission Date: 20251020
  Serious: Yes (Other)
  Sender: MERCK SHARP & DOHME LLC
  Company Number: CN-PFIZER INC-202300456887

PATIENT
  Age: 3 Month
  Sex: Female

DRUGS (5)
  1. CASPOFUNGIN [Suspect]
     Active Substance: CASPOFUNGIN
     Indication: Product used for unknown indication
     Route: 065
     Dates: start: 20231106, end: 20231123
  2. IMIPENEM [Suspect]
     Active Substance: IMIPENEM
     Indication: Product used for unknown indication
     Route: 065
     Dates: start: 20231106, end: 20231123
  3. CEFOPERAZONE SODIUM\SULBACTAM SODIUM [Suspect]
     Active Substance: CEFOPERAZONE SODIUM\SULBACTAM SODIUM
     Indication: Infection
     Route: 065
     Dates: start: 20231111, end: 20231115
  4. CEFOPERAZONE SODIUM\SULBACTAM SODIUM [Suspect]
     Active Substance: CEFOPERAZONE SODIUM\SULBACTAM SODIUM
     Indication: Infection
     Route: 065
     Dates: start: 20231120, end: 20231123
  5. TYGACIL [Suspect]
     Active Substance: TIGECYCLINE
     Indication: Infection
     Route: 065
     Dates: start: 20231111, end: 20231123

REACTIONS (4)
  - Drug ineffective [Unknown]
  - Respiratory tract infection [Unknown]
  - Blood test abnormal [Recovered/Resolved]
  - White blood cell count increased [Recovered/Resolved]
